FAERS Safety Report 22288933 (Version 1)
Quarter: 2023Q2

REPORT INFORMATION
  Report Type: Spontaneous
  Country: US (occurrence: None)
  Receive Date: 20230504
  Receipt Date: 20230504
  Transmission Date: 20230722
  Serious: Yes (Death)
  Sender: FDA-Public Use
  Company Number: None

PATIENT
  Sex: Female

DRUGS (1)
  1. IBRANCE [Suspect]
     Active Substance: PALBOCICLIB
     Indication: Aplastic anaemia
     Dosage: OTHER FREQUENCY : 21 DAYS ON 7 OFF;?
     Route: 048
     Dates: start: 20230419

REACTIONS (1)
  - Disease complication [None]
